FAERS Safety Report 8055055-2 (Version None)
Quarter: 2012Q1

REPORT INFORMATION
  Report Type: 
  Country: None (occurrence: None)
  Receive Date: 20120119
  Receipt Date: 20120113
  Transmission Date: 20120608
  Serious: Yes (Life-Threatening, Hospitalization, Other)
  Sender: FDA-Public Use
  Company Number: GB-PFIZER INC-2009232591

PATIENT
  Age: 29 Year
  Sex: Male

DRUGS (5)
  1. ACETYLSALICYLIC ACID SRT [Suspect]
     Indication: ABDOMINAL PAIN
     Dosage: 300 MG, 3X/DAY
     Route: 048
     Dates: start: 20090610, end: 20090612
  2. CITALOPRAM [Suspect]
     Indication: DEPRESSION
     Dosage: 20 MG, 1X/DAY
     Route: 048
     Dates: start: 20090105, end: 20090616
  3. IBUPROFEN [Suspect]
     Indication: ABDOMINAL PAIN
     Dosage: 400 MG, 3X/DAY
     Route: 048
     Dates: start: 20090605, end: 20090609
  4. BECONASE [Concomitant]
  5. CETIRIZINE [Concomitant]

REACTIONS (2)
  - ABDOMINAL PAIN [None]
  - GASTRIC ULCER PERFORATION [None]
